FAERS Safety Report 9693145 (Version 3)
Quarter: 2014Q2

REPORT INFORMATION
  Report Type: Report from Study
  Country: ES (occurrence: DE)
  Receive Date: 20131118
  Receipt Date: 20140502
  Transmission Date: 20141212
  Serious: No
  Sender: FDA-Public Use
  Company Number: DE-FRI-1000051439

PATIENT
  Age: 65 Year
  Sex: Male
  Weight: 106 kg

DRUGS (1)
  1. ACLIDINIUM [Suspect]
     Indication: CHRONIC OBSTRUCTIVE PULMONARY DISEASE
     Dates: start: 20130318, end: 20130624

REACTIONS (1)
  - Bronchial carcinoma [Unknown]
